FAERS Safety Report 4962169-X (Version None)
Quarter: 2006Q1

REPORT INFORMATION
  Report Type: 
  Country: None (occurrence: None)
  Receive Date: 20060329
  Receipt Date: 20060317
  Transmission Date: 20060701
  Serious: Yes (Hospitalization)
  Sender: FDA-Public Use
  Company Number: GXBR2006US00738

PATIENT
  Sex: Male

DRUGS (2)
  1. AMANTADINE HCL [Suspect]
     Dosage: 200 MG, QD, ORAL
     Route: 048
  2. AMIODARONE HCL [Suspect]

REACTIONS (5)
  - CARDIAC FAILURE CONGESTIVE [None]
  - DRUG DISPENSING ERROR [None]
  - FEELING ABNORMAL [None]
  - PNEUMONITIS [None]
  - PULMONARY OEDEMA [None]
